FAERS Safety Report 16741441 (Version 1)
Quarter: 2019Q3

REPORT INFORMATION
  Report Type: Spontaneous
  Country: JP (occurrence: JP)
  Receive Date: 20190826
  Receipt Date: 20190826
  Transmission Date: 20191005
  Serious: Yes (Other)
  Sender: FDA-Public Use
  Company Number: JP-PFIZER INC-2019357378

PATIENT
  Age: 8 Decade
  Sex: Female
  Weight: 38.6 kg

DRUGS (1)
  1. ANAEMETRO [Suspect]
     Active Substance: METRONIDAZOLE
     Dosage: UNK, (1 VIAL) 4X/DAY

REACTIONS (3)
  - Renal impairment [Unknown]
  - Creatinine renal clearance decreased [Unknown]
  - Renal failure [Unknown]
